FAERS Safety Report 7825826-3 (Version None)
Quarter: 2011Q4

REPORT INFORMATION
  Report Type: 
  Country: None (occurrence: None)
  Receive Date: 20111019
  Receipt Date: 20110928
  Transmission Date: 20120403
  Serious: Yes (Hospitalization)
  Sender: FDA-Public Use
  Company Number: AR-ROCHE-798883

PATIENT
  Age: 52 Year
  Sex: Male
  Weight: 60 kg

DRUGS (2)
  1. ACTEMRA [Suspect]
     Indication: RHEUMATOID ARTHRITIS
     Dosage: DOSE BLINDED. LAST DOSE PRIOR TO SAE: 01 AUGUST 2011
     Route: 058
  2. ACTEMRA [Suspect]
     Indication: RHEUMATOID ARTHRITIS

REACTIONS (3)
  - PNEUMONIA [None]
  - BRONCHITIS [None]
  - PLEURAL EFFUSION [None]
